FAERS Safety Report 18154103 (Version 1)
Quarter: 2020Q3

REPORT INFORMATION
  Report Type: Spontaneous
  Country: US (occurrence: US)
  Receive Date: 20200816
  Receipt Date: 20200816
  Transmission Date: 20201103
  Serious: No
  Sender: FDA-Public Use
  Company Number: US-ASTRAZENECA-2020SF01217

PATIENT
  Age: 3188 Week
  Sex: Male
  Weight: 135.2 kg

DRUGS (3)
  1. SYMBICORT [Suspect]
     Active Substance: BUDESONIDE\FORMOTEROL FUMARATE DIHYDRATE
     Indication: ASTHMA
     Dosage: UNKNOW,2 PUFFS TWICE DAILY
     Route: 055
     Dates: start: 2017
  2. SYMBICORT [Suspect]
     Active Substance: BUDESONIDE\FORMOTEROL FUMARATE DIHYDRATE
     Indication: CHRONIC OBSTRUCTIVE PULMONARY DISEASE
     Dosage: UNKNOW,2 PUFFS TWICE DAILY
     Route: 055
     Dates: start: 2017
  3. SYMBICORT [Suspect]
     Active Substance: BUDESONIDE\FORMOTEROL FUMARATE DIHYDRATE
     Indication: PULMONARY CONGESTION
     Dosage: UNKNOW,2 PUFFS TWICE DAILY
     Route: 055
     Dates: start: 2017

REACTIONS (4)
  - Dyspnoea [Unknown]
  - Chest discomfort [Unknown]
  - Product formulation issue [Unknown]
  - Product dose omission issue [Unknown]

NARRATIVE: CASE EVENT DATE: 20200723
